FAERS Safety Report 5342127-6 (Version None)
Quarter: 2007Q2

REPORT INFORMATION
  Report Type: 
  Country: None (occurrence: None)
  Receive Date: 20070601
  Receipt Date: 20070524
  Transmission Date: 20071010
  Serious: Yes (Hospitalization, Other)
  Sender: FDA-Public Use
  Company Number: DE-MERCK-0705USA04844

PATIENT
  Sex: Female

DRUGS (5)
  1. CORTONE [Suspect]
     Indication: RHEUMATOID ARTHRITIS
     Route: 065
  2. ENBREL [Suspect]
     Indication: RHEUMATOID ARTHRITIS
     Route: 058
  3. METFORMIN [Concomitant]
     Route: 065
     Dates: start: 20060901
  4. METHOTREXATE [Suspect]
     Indication: RHEUMATOID ARTHRITIS
     Route: 065
     Dates: start: 20030101
  5. ARAVA [Suspect]
     Indication: RHEUMATOID ARTHRITIS
     Route: 048

REACTIONS (10)
  - ALOPECIA [None]
  - CARPAL TUNNEL SYNDROME [None]
  - DIABETES MELLITUS [None]
  - DIZZINESS [None]
  - DYSAESTHESIA [None]
  - FATIGUE [None]
  - HAEMORRHAGE [None]
  - MALAISE [None]
  - PAIN [None]
  - TRIGEMINAL NEURALGIA [None]
